FAERS Safety Report 14897067 (Version 1)
Quarter: 2018Q2

REPORT INFORMATION
  Report Type: Spontaneous
  Country: US (occurrence: US)
  Receive Date: 20180427
  Receipt Date: 20180427
  Transmission Date: 20180711
  Serious: Yes (Other)
  Sender: FDA-Public Use
  Company Number: None

PATIENT
  Age: 64 Year
  Sex: 0
  Weight: 136.08 kg

DRUGS (1)
  1. EZETIMIBE/SIMVASTATIN 10/10 [Suspect]
     Active Substance: EZETIMIBE\SIMVASTATIN
     Indication: HYPERLIPIDAEMIA
     Route: 048
     Dates: start: 20170802

REACTIONS (1)
  - Myalgia [None]

NARRATIVE: CASE EVENT DATE: 201712
